FAERS Safety Report 18544257 (Version 1)
Quarter: 2020Q4

REPORT INFORMATION
  Report Type: Spontaneous
  Country: CN (occurrence: CN)
  Receive Date: 20201125
  Receipt Date: 20201125
  Transmission Date: 20210114
  Serious: Yes (Life-Threatening)
  Sender: FDA-Public Use
  Company Number: CN-BAXTER-2020BAX023686

PATIENT
  Age: 19 Year
  Sex: Male
  Weight: 78 kg

DRUGS (4)
  1. TRANEXAMIC ACID. [Suspect]
     Active Substance: TRANEXAMIC ACID
     Indication: POST PROCEDURAL HAEMORRHAGE
     Route: 041
     Dates: start: 20201113, end: 20201114
  2. 20% MANNITOL INJECTION [Suspect]
     Active Substance: MANNITOL
     Indication: POST PROCEDURAL OEDEMA
     Route: 041
     Dates: start: 20201114, end: 20201114
  3. 20% MANNITOL INJECTION [Suspect]
     Active Substance: MANNITOL
     Dosage: DOSE REINTRODUCED
     Route: 041
  4. TRANEXAMIC ACID. [Suspect]
     Active Substance: TRANEXAMIC ACID
     Dosage: DOSE REINTRODUCED
     Route: 041

REACTIONS (4)
  - Vomiting [Recovering/Resolving]
  - Palpitations [Recovering/Resolving]
  - Nausea [Recovering/Resolving]
  - Dyspnoea [Recovering/Resolving]

NARRATIVE: CASE EVENT DATE: 20201114
